FAERS Safety Report 5008549-8 (Version None)
Quarter: 2006Q2

REPORT INFORMATION
  Report Type: 
  Country: None (occurrence: None)
  Receive Date: 20060522
  Receipt Date: 20060522
  Transmission Date: 20061013
  Serious: Yes (Hospitalization)
  Sender: FDA-Public Use
  Company Number: None

PATIENT
  Age: 75 Year
  Sex: Male

DRUGS (1)
  1. FUROSEMIDE [Suspect]
     Indication: CARDIAC FAILURE CONGESTIVE
     Dosage: 60 MG BID PO
     Route: 048
     Dates: start: 20060326, end: 20060329

REACTIONS (4)
  - DEHYDRATION [None]
  - DIARRHOEA [None]
  - DYSURIA [None]
  - HYPOTENSION [None]
